FAERS Safety Report 11603311 (Version 1)
Quarter: 2015Q4

REPORT INFORMATION
  Report Type: Spontaneous
  Country: US (occurrence: None)
  Receive Date: 20151005
  Receipt Date: 20151005
  Transmission Date: 20160304
  Serious: Yes (Hospitalization)
  Sender: FDA-Public Use
  Company Number: None

PATIENT
  Age: 72 Year
  Sex: Female

DRUGS (2)
  1. CYMBALTA [Concomitant]
     Active Substance: DULOXETINE HYDROCHLORIDE
  2. LIMBREL [Suspect]
     Active Substance: FLAVOCOXID
     Indication: OSTEOARTHRITIS
     Route: 048

REACTIONS (5)
  - Headache [None]
  - Confusional state [None]
  - Dysarthria [None]
  - Nuclear magnetic resonance imaging abnormal [None]
  - Angiopathy [None]

NARRATIVE: CASE EVENT DATE: 20150922
